FAERS Safety Report 8080707-8 (Version None)
Quarter: 2012Q1

REPORT INFORMATION
  Report Type: 
  Country: None (occurrence: None)
  Receive Date: 20120130
  Receipt Date: 20120130
  Transmission Date: 20120608
  Serious: Yes (Life-Threatening, Other)
  Sender: FDA-Public Use
  Company Number: CA-JNJFOC-20110401294

PATIENT
  Sex: Male
  Weight: 96.4 kg

DRUGS (16)
  1. CELEBREX [Concomitant]
  2. REMICADE [Suspect]
     Route: 042
     Dates: start: 20110201
  3. REMICADE [Suspect]
     Route: 042
     Dates: start: 20110526
  4. GLYBURIDE [Concomitant]
  5. METHOTREXATE [Concomitant]
     Route: 058
  6. ACETAMINOPHEN [Concomitant]
  7. METFFORMIN HYDROCHLORIDE [Concomitant]
  8. FOLIC ACID [Concomitant]
  9. REMICADE [Suspect]
     Indication: RHEUMATOID ARTHRITIS
     Route: 042
  10. REMICADE [Suspect]
     Route: 042
     Dates: start: 20110526
  11. NORVASC [Concomitant]
  12. REMICADE [Suspect]
     Route: 042
     Dates: start: 20041108
  13. SYNTHROID [Concomitant]
  14. LIPITOR [Concomitant]
  15. METOPROLOL TARTRATE [Concomitant]
  16. HYDROCHLOROTHIAZIDE [Concomitant]

REACTIONS (7)
  - ASTHENIA [None]
  - HEADACHE [None]
  - VOMITING [None]
  - HYPOAESTHESIA [None]
  - DIZZINESS [None]
  - NAUSEA [None]
  - DIARRHOEA [None]
